FAERS Safety Report 19035508 (Version 2)
Quarter: 2021Q4

REPORT INFORMATION
  Report Type: Report from Study
  Country: US (occurrence: US)
  Receive Date: 20210320
  Receipt Date: 20211202
  Transmission Date: 20220303
  Serious: Yes (Hospitalization, Other)
  Sender: FDA-Public Use
  Company Number: US-SHIRE-US201822608

PATIENT
  Age: 58 Year
  Sex: Female
  Weight: 61 kg

DRUGS (8)
  1. TEDUGLUTIDE [Suspect]
     Active Substance: TEDUGLUTIDE
     Indication: Short-bowel syndrome
     Dosage: 0.08 MILLIGRAM/KILOGRAM, 1X/DAY:QD (7 DOSES PER WEEK)
     Route: 065
     Dates: start: 20171013
  2. TEDUGLUTIDE [Suspect]
     Active Substance: TEDUGLUTIDE
     Indication: Short-bowel syndrome
     Dosage: 0.08 MILLIGRAM/KILOGRAM, 1X/DAY:QD (7 DOSES PER WEEK)
     Route: 065
     Dates: start: 20171013
  3. TEDUGLUTIDE [Suspect]
     Active Substance: TEDUGLUTIDE
     Indication: Short-bowel syndrome
     Dosage: 0.08 MILLIGRAM/KILOGRAM, 1X/DAY:QD (7 DOSES PER WEEK)
     Route: 065
     Dates: start: 20171013
  4. TEDUGLUTIDE [Suspect]
     Active Substance: TEDUGLUTIDE
     Indication: Short-bowel syndrome
     Dosage: 0.08 MILLIGRAM/KILOGRAM, 1X/DAY:QD (7 DOSES PER WEEK)
     Route: 065
     Dates: start: 20171013
  5. QUETIAPINE [Concomitant]
     Active Substance: QUETIAPINE
     Indication: Depression
     Route: 065
  6. CEPHALEXIN [Concomitant]
     Active Substance: CEPHALEXIN
     Indication: Short-bowel syndrome
     Route: 065
  7. OPIUM [Concomitant]
     Active Substance: OPIUM
     Indication: Short-bowel syndrome
     Route: 065
  8. LOPERAMIDE [Concomitant]
     Active Substance: LOPERAMIDE
     Indication: Short-bowel syndrome
     Route: 065

REACTIONS (3)
  - Abdominal pain [Recovered/Resolved]
  - Device related sepsis [Recovered/Resolved]
  - Vascular device infection [Recovered/Resolved]

NARRATIVE: CASE EVENT DATE: 20171206
